FAERS Safety Report 13699994 (Version 2)
Quarter: 2017Q3

REPORT INFORMATION
  Report Type: Report from Study
  Country: FR (occurrence: FR)
  Receive Date: 20170629
  Receipt Date: 20170714
  Transmission Date: 20171127
  Serious: No
  Sender: FDA-Public Use
  Company Number: FR-AMGEN-FRASL2017084541

PATIENT
  Age: 75 Year
  Sex: Female
  Weight: 50 kg

DRUGS (19)
  1. CARFILZOMIB [Suspect]
     Active Substance: CARFILZOMIB
     Dosage: 44 MG, UNK
     Route: 065
     Dates: start: 2017
  2. ZOPHREN [Concomitant]
     Active Substance: ONDANSETRON
     Dosage: 1 DF, BID (IN MORNING AND AT NIGHT)
  3. CARFILZOMIB [Suspect]
     Active Substance: CARFILZOMIB
     Indication: PLASMA CELL MYELOMA
     Dosage: 27 MG/M2, UNK
     Route: 065
     Dates: start: 201701, end: 2017
  4. CARFILZOMIB [Suspect]
     Active Substance: CARFILZOMIB
     Dosage: UNK, CYCLE 3, DAY 15 DAY 16
     Route: 065
     Dates: start: 2017
  5. LYRICA [Concomitant]
     Active Substance: PREGABALIN
     Dosage: UNK UNK, BID (1 IN MORNING AND AT NIGHT)
  6. KARDEGIC [Concomitant]
     Active Substance: ASPIRIN LYSINE
     Dosage: 1 DF, QD
  7. OMEPRAZOLE. [Concomitant]
     Active Substance: OMEPRAZOLE
     Dosage: 1 DF, QD
  8. ZELITREX [Concomitant]
     Active Substance: VALACYCLOVIR HYDROCHLORIDE
     Dosage: 1 DF, BID (IN MORNING AND AT NIGHT)
  9. DEXAMETHASONE. [Concomitant]
     Active Substance: DEXAMETHASONE
     Indication: PLASMA CELL MYELOMA
     Dosage: UNK
     Dates: start: 201701
  10. LYRICA [Concomitant]
     Active Substance: PREGABALIN
     Dosage: 1 DF, QD
  11. MOVICOL [Concomitant]
     Active Substance: POLYETHYLENE GLYCOL 3350\POTASSIUM CHLORIDE\SODIUM BICARBONATE\SODIUM CHLORIDE
     Dosage: 2 DF, UNK (IN A SINGLE INTAKE)
  12. OMEPRAZOLE. [Concomitant]
     Active Substance: OMEPRAZOLE
     Dosage: 1 DF, UNK (AT NIGHT)
  13. CODOLIPRANE [Concomitant]
     Active Substance: ACETAMINOPHEN\CODEINE PHOSPHATE
     Dosage: UNK UNK, QD (TWO TO THREE TIMES)
  14. REVLIMID [Concomitant]
     Active Substance: LENALIDOMIDE
     Indication: PLASMA CELL MYELOMA
     Dosage: UNK
     Dates: start: 201701
  15. REVLIMID [Concomitant]
     Active Substance: LENALIDOMIDE
     Dosage: 25 MG, UNK 1 PER DAY FOR STILL ONE WEEK
  16. LOXEN [Concomitant]
     Active Substance: NICARDIPINE HYDROCHLORIDE
     Dosage: 1 DF, UNK (IN MORNING)
  17. LAROXYL [Concomitant]
     Active Substance: AMITRIPTYLINE
     Dosage: UNK (6 DROPS AT BED TIME)
  18. DEXAMETHASONE. [Concomitant]
     Active Substance: DEXAMETHASONE
     Dosage: 40 MG, QWK
  19. DOLIPRANE [Concomitant]
     Active Substance: ACETAMINOPHEN
     Dosage: 1 G, AS NECESSARY

REACTIONS (6)
  - C-reactive protein increased [Unknown]
  - Bone disorder [Not Recovered/Not Resolved]
  - Asthenia [Unknown]
  - Rhinorrhoea [Unknown]
  - Laboratory test abnormal [Unknown]
  - Cough [Unknown]

NARRATIVE: CASE EVENT DATE: 2017
